FAERS Safety Report 23423078 (Version 1)
Quarter: 2024Q1

REPORT INFORMATION
  Report Type: Spontaneous
  Country: IT (occurrence: IT)
  Receive Date: 20240119
  Receipt Date: 20240119
  Transmission Date: 20240409
  Serious: Yes (Other)
  Sender: FDA-Public Use
  Company Number: IT-PFM-2024-00071

PATIENT
  Age: 60 Year
  Sex: Female

DRUGS (10)
  1. DOXORUBICIN [Suspect]
     Active Substance: DOXORUBICIN
     Indication: Metastases to liver
     Dosage: BIMONTHLY, EVERY 15 DAYS
     Route: 065
  2. DOXORUBICIN [Suspect]
     Active Substance: DOXORUBICIN
     Indication: Breast cancer metastatic
  3. VINORELBINE [Suspect]
     Active Substance: VINORELBINE TARTRATE
     Indication: Breast cancer metastatic
     Dosage: UNK
     Route: 048
  4. VINORELBINE [Suspect]
     Active Substance: VINORELBINE TARTRATE
     Indication: Metastases to liver
  5. ERIBULIN [Suspect]
     Active Substance: ERIBULIN
     Indication: Breast cancer metastatic
     Dosage: DOSE WAS REDUCED TO 88% (2 MG) OF THE STANDARD DOSE
     Route: 065
  6. ERIBULIN [Suspect]
     Active Substance: ERIBULIN
     Indication: Metastases to liver
     Dosage: 1.23 MILLIGRAM PER GRAM, DAYS 1 AND 8 OF A 21-DAY CYCLE)
     Route: 065
     Dates: start: 201611
  7. PACLITAXEL [Suspect]
     Active Substance: PACLITAXEL
     Indication: Breast cancer metastatic
     Dosage: (DAYS 1, 8, AND 15 EVERY 28 DAYS)
     Route: 065
     Dates: start: 201606
  8. PACLITAXEL [Suspect]
     Active Substance: PACLITAXEL
     Indication: Metastases to liver
  9. CARBOPLATIN [Suspect]
     Active Substance: CARBOPLATIN
     Indication: Breast cancer metastatic
     Dosage: ON DAYS 1, 8, AND 15 EVERY 28 DAYS
     Route: 065
  10. CARBOPLATIN [Suspect]
     Active Substance: CARBOPLATIN
     Indication: Metastases to liver

REACTIONS (3)
  - Alopecia [Unknown]
  - Carbohydrate antigen 15-3 increased [Unknown]
  - Asthenia [Unknown]

NARRATIVE: CASE EVENT DATE: 20160101
